FAERS Safety Report 5319271-2 (Version None)
Quarter: 2007Q2

REPORT INFORMATION
  Report Type: 
  Country: None (occurrence: None)
  Receive Date: 20070508
  Receipt Date: 20070427
  Transmission Date: 20071010
  Serious: Yes (Death, Other)
  Sender: FDA-Public Use
  Company Number: HQWYE658123FEB07

PATIENT
  Sex: Female

DRUGS (5)
  1. HYPEN [Suspect]
     Indication: BACK PAIN
     Dosage: 400 MG, UNKNOWN FREQUENCY
     Route: 048
     Dates: start: 20070206, end: 20070210
  2. BENZBROMARONE [Suspect]
     Route: 048
     Dates: start: 20040115, end: 20070210
  3. EFONIDIPINE HYDROCHLORIDE [Suspect]
     Route: 048
     Dates: start: 20040115, end: 20070210
  4. GASLON [Suspect]
     Dosage: 4 MG
     Route: 048
     Dates: start: 20070206, end: 20070210
  5. IMIDAPRIL HYDROCHLORIDE [Suspect]
     Route: 048
     Dates: start: 20040115, end: 20070210

REACTIONS (3)
  - CARDIO-RESPIRATORY ARREST [None]
  - GASTROINTESTINAL HAEMORRHAGE [None]
  - HAEMATEMESIS [None]
